FAERS Safety Report 7039016-8 (Version None)
Quarter: 2010Q4

REPORT INFORMATION
  Report Type: 
  Country: None (occurrence: None)
  Receive Date: 20101012
  Receipt Date: 20101004
  Transmission Date: 20110411
  Serious: No
  Sender: FDA-Public Use
  Company Number: US-B.I. PHARMACEUTICALS,INC./RIDGEFIELD-2010-BP-11308BP

PATIENT
  Sex: Male

DRUGS (3)
  1. ZANTAC 150 [Suspect]
     Indication: DYSPEPSIA
     Dosage: 150 MG
     Route: 048
     Dates: start: 20100923, end: 20100923
  2. ZANTAC 150 [Suspect]
     Dosage: 150 MG
     Route: 048
     Dates: start: 20101002, end: 20101002
  3. VITAMINS [Suspect]
     Dates: start: 20100901, end: 20100901

REACTIONS (6)
  - GENERALISED ERYTHEMA [None]
  - HYPOAESTHESIA [None]
  - NAUSEA [None]
  - PRURITUS GENERALISED [None]
  - SKIN BURNING SENSATION [None]
  - VOMITING PROJECTILE [None]
